FAERS Safety Report 24020145 (Version 1)
Quarter: 2024Q2

REPORT INFORMATION
  Report Type: Spontaneous
  Country: US (occurrence: None)
  Receive Date: 20240627
  Receipt Date: 20240627
  Transmission Date: 20240716
  Serious: Yes (Hospitalization)
  Sender: FDA-Public Use
  Company Number: None

PATIENT
  Age: 60 Year
  Sex: Male

DRUGS (4)
  1. MYCOPHENOLATE MOFETIL [Suspect]
     Active Substance: MYCOPHENOLATE MOFETIL
     Dosage: FREQUENCY : TWICE A DAY;?
     Route: 048
     Dates: start: 202202
  2. MYCOPHENOLATE MIOFETIL [Concomitant]
  3. GAMMAKED [Concomitant]
  4. RYSTIGGO SDV [Concomitant]

REACTIONS (2)
  - Myasthenia gravis [None]
  - Myasthenia gravis crisis [None]

NARRATIVE: CASE EVENT DATE: 20240412
